FAERS Safety Report 5319322-5 (Version None)
Quarter: 2007Q2

REPORT INFORMATION
  Report Type: 
  Country: None (occurrence: None)
  Receive Date: 20070508
  Receipt Date: 20070428
  Transmission Date: 20071010
  Serious: Yes (Hospitalization, Other)
  Sender: FDA-Public Use
  Company Number: US-PFIZER INC-2007035308

PATIENT
  Sex: Female
  Weight: 65.909 kg

DRUGS (6)
  1. CHANTIX [Suspect]
     Indication: SMOKING CESSATION THERAPY
     Dates: start: 20070322, end: 20070328
  2. SEROQUEL [Concomitant]
  3. XANAX [Concomitant]
     Indication: ANXIETY
  4. PRILOSEC [Concomitant]
     Indication: STOMACH DISCOMFORT
  5. NEURONTIN [Concomitant]
  6. ABILIFY [Concomitant]

REACTIONS (2)
  - DEPRESSION [None]
  - ELECTROCONVULSIVE THERAPY [None]
